FAERS Safety Report 13727166 (Version 2)
Quarter: 2017Q3

REPORT INFORMATION
  Report Type: Spontaneous
  Country: FI (occurrence: FI)
  Receive Date: 20170707
  Receipt Date: 20170717
  Transmission Date: 20171127
  Serious: Yes (Hospitalization, Other)
  Sender: FDA-Public Use
  Company Number: FI-PFIZER INC-2017289348

PATIENT
  Age: 51 Year
  Sex: Female

DRUGS (2)
  1. DOCETAXEL. [Suspect]
     Active Substance: DOCETAXEL
     Indication: BREAST CANCER FEMALE
     Dosage: 155 MG, UNK
     Route: 042
     Dates: start: 20170209, end: 20170209
  2. DOCETAXEL. [Suspect]
     Active Substance: DOCETAXEL
     Dosage: 155 MG, UNK
     Route: 042
     Dates: start: 20170302, end: 20170302

REACTIONS (8)
  - Swelling [Unknown]
  - Sinusitis [Unknown]
  - Neutropenia [Unknown]
  - Swelling face [Unknown]
  - Pneumonia [Unknown]
  - Mucous membrane disorder [Unknown]
  - Streptococcal sepsis [Unknown]
  - Pyrexia [Unknown]

NARRATIVE: CASE EVENT DATE: 201703
